FAERS Safety Report 7629485-4 (Version None)
Quarter: 2011Q3

REPORT INFORMATION
  Report Type: 
  Country: None (occurrence: None)
  Receive Date: 20110722
  Receipt Date: 20110714
  Transmission Date: 20111222
  Serious: Yes (Other)
  Sender: FDA-Public Use
  Company Number: US-ABBOTT-11P-163-0839585-00

PATIENT
  Age: 48 Year
  Sex: Female

DRUGS (3)
  1. HYDRALAZINE HCL [Concomitant]
     Indication: HYPERTENSION
     Route: 048
  2. PROMETHAZINE [Concomitant]
     Indication: NAUSEA
     Route: 054
  3. HUMIRA [Suspect]
     Indication: CROHN'S DISEASE
     Dates: start: 20101117, end: 20110401

REACTIONS (2)
  - ENTEROCOLITIS [None]
  - CROHN'S DISEASE [None]
